FAERS Safety Report 5358017-9 (Version None)
Quarter: 2007Q2

REPORT INFORMATION
  Report Type: 
  Country: None (occurrence: None)
  Receive Date: 20070530
  Receipt Date: 20061129
  Transmission Date: 20071010
  Serious: Yes (Other)
  Sender: FDA-Public Use
  Company Number: US200612000371

PATIENT

DRUGS (3)
  1. ZYPREXA [Suspect]
     Dosage: 10 MG
     Dates: start: 19980101
  2. PROLIXIN [Concomitant]
  3. TRAZODIL (TRAZODONE HYDROCHLORIDE) [Concomitant]

REACTIONS (2)
  - DIABETES MELLITUS [None]
  - WEIGHT INCREASED [None]
